FAERS Safety Report 4381757-5 (Version None)
Quarter: 2004Q2

REPORT INFORMATION
  Report Type: 
  Country: None (occurrence: None)
  Receive Date: 20040615
  Receipt Date: 20040602
  Transmission Date: 20050107
  Serious: Yes (Hospitalization)
  Sender: FDA-Public Use
  Company Number: CA-JNJFOC-20040600557

PATIENT
  Age: 59 Year
  Sex: Female
  Weight: 70.1 kg

DRUGS (8)
  1. REMICADE [Suspect]
     Indication: RHEUMATOID ARTHRITIS
     Dosage: 300 MG, 1 IN 8 WEEK, INTRAVENOUS
     Route: 042
     Dates: start: 20030908
  2. MTX (METHOTREXATE SODIUM) TABLETS [Concomitant]
  3. METFORMIN (METFORMIN) TABLETS [Concomitant]
  4. FOLIC ACID [Concomitant]
  5. PREDNISONE [Concomitant]
  6. VIOXX [Concomitant]
  7. FOSAMAX [Concomitant]
  8. CALCIUM 500 MG + VITAMIN D (CALCIUM WITH VITAMIN D) [Concomitant]

REACTIONS (6)
  - BLOOD GLUCOSE INCREASED [None]
  - CELLULITIS [None]
  - JOINT INJURY [None]
  - PAIN IN EXTREMITY [None]
  - ULNAR NERVE INJURY [None]
  - X-RAY LIMB ABNORMAL [None]
